FAERS Safety Report 6025744-X (Version None)
Quarter: 2009Q1

REPORT INFORMATION
  Report Type: 
  Country: None (occurrence: None)
  Receive Date: 20090101
  Receipt Date: 20081225
  Transmission Date: 20090719
  Serious: Yes (Hospitalization)
  Sender: FDA-Public Use
  Company Number: JP-ABBOTT-08P-087-0465318-00

PATIENT
  Age: 42 Year
  Sex: Male

DRUGS (9)
  1. NORVIR [Suspect]
     Indication: HIV INFECTION
     Route: 048
     Dates: start: 20070401, end: 20071011
  2. KALETRA [Suspect]
     Indication: HIV INFECTION
     Dosage: 800/200 MILLIGRAM
     Route: 048
     Dates: start: 20071012
  3. ATAZANAVIR [Concomitant]
     Indication: HIV INFECTION
     Route: 048
     Dates: start: 20070401, end: 20071011
  4. EMTRICITABINE W/TENOFOVIR [Concomitant]
     Indication: HIV INFECTION
     Route: 048
     Dates: start: 20070401, end: 20071011
  5. LAMIVUDINE [Concomitant]
     Indication: HIV INFECTION
     Route: 048
     Dates: start: 20071012, end: 20080217
  6. LAMIVUDINE [Concomitant]
     Route: 048
     Dates: start: 20080218
  7. ABACAVIR [Concomitant]
     Indication: HIV INFECTION
     Route: 048
     Dates: start: 20071012, end: 20080217
  8. ZIDOVUDINE [Concomitant]
     Indication: HIV INFECTION
     Route: 048
     Dates: start: 20080218
  9. VALGANCICLOVIR HCL [Concomitant]
     Indication: CYTOMEGALOVIRUS CHORIORETINITIS
     Route: 048
     Dates: start: 20070401

REACTIONS (8)
  - AIDS ENCEPHALOPATHY [None]
  - BRADYKINESIA [None]
  - HEADACHE [None]
  - HYPOKINESIA [None]
  - NERVOUS SYSTEM DISORDER [None]
  - SPEECH DISORDER [None]
  - TREMOR [None]
  - URINARY INCONTINENCE [None]
